FAERS Safety Report 14820094 (Version 1)
Quarter: 2018Q2

REPORT INFORMATION
  Report Type: Spontaneous
  Country: DK (occurrence: DK)
  Receive Date: 20180427
  Receipt Date: 20180427
  Transmission Date: 20180711
  Serious: Yes (Hospitalization)
  Sender: FDA-Public Use
  Company Number: DK-LPDUSPRD-20180633

PATIENT
  Age: 39 Year
  Sex: Female

DRUGS (1)
  1. FERINJECT [Suspect]
     Active Substance: FERRIC CARBOXYMALTOSE
     Dosage: 1000 MG, 1 TOTAL)
     Route: 042
     Dates: start: 20180208, end: 20180208

REACTIONS (7)
  - Infusion site erythema [Unknown]
  - Myalgia [Unknown]
  - Burning sensation [Unknown]
  - Paraesthesia [Unknown]
  - Pruritus [Unknown]
  - Pain [Unknown]
  - Infusion site warmth [Unknown]

NARRATIVE: CASE EVENT DATE: 201802
